FAERS Safety Report 11514072 (Version 1)
Quarter: 2015Q3

REPORT INFORMATION
  Report Type: Spontaneous
  Country: US (occurrence: US)
  Receive Date: 20150903
  Receipt Date: 20150903
  Transmission Date: 20151125
  Serious: No
  Sender: FDA-Public Use
  Company Number: US-ELI_LILLY_AND_COMPANY-US201212002997

PATIENT
  Sex: Female

DRUGS (1)
  1. CYMBALTA [Suspect]
     Active Substance: DULOXETINE HYDROCHLORIDE
     Indication: PANIC DISORDER

REACTIONS (11)
  - Pain in extremity [Unknown]
  - Off label use [Unknown]
  - Muscular weakness [Unknown]
  - Decreased appetite [Unknown]
  - Constipation [Unknown]
  - Pain [Unknown]
  - Agitation [Unknown]
  - Dry mouth [Unknown]
  - Fatigue [Unknown]
  - Drug ineffective [Unknown]
  - Nervousness [Unknown]
